FAERS Safety Report 7554752-2 (Version None)
Quarter: 2011Q2

REPORT INFORMATION
  Report Type: 
  Country: None (occurrence: None)
  Receive Date: 20110617
  Receipt Date: 20110607
  Transmission Date: 20111010
  Serious: Yes (Hospitalization, Other)
  Sender: FDA-Public Use
  Company Number: US-ROCHE-738889

PATIENT
  Sex: Male
  Weight: 68.9 kg

DRUGS (2)
  1. ACCUTANE [Suspect]
     Indication: ACNE
     Route: 065
     Dates: start: 19910101, end: 19930101
  2. ACCUTANE [Suspect]
     Route: 065
     Dates: start: 19940701, end: 19940901

REACTIONS (8)
  - COLONIC POLYP [None]
  - CROHN'S DISEASE [None]
  - GASTROINTESTINAL INJURY [None]
  - ARTHRITIS [None]
  - ANXIETY [None]
  - INFLAMMATORY BOWEL DISEASE [None]
  - ANAL FISTULA [None]
  - PERIRECTAL ABSCESS [None]
